FAERS Safety Report 13407972 (Version 2)
Quarter: 2017Q3

REPORT INFORMATION
  Report Type: Spontaneous
  Country: SE (occurrence: SE)
  Receive Date: 20170406
  Receipt Date: 20170823
  Transmission Date: 20171127
  Serious: Yes (Other)
  Sender: FDA-Public Use
  Company Number: SE-ACCORD-049854

PATIENT
  Sex: Female

DRUGS (1)
  1. LETROZOL ACCORD [Suspect]
     Active Substance: LETROZOLE
     Indication: BREAST CANCER

REACTIONS (10)
  - Nasopharyngitis [Unknown]
  - Chills [Unknown]
  - Tooth injury [Unknown]
  - Streptococcal sepsis [Unknown]
  - Peripheral swelling [Unknown]
  - Skin ulcer [Unknown]
  - Anger [Unknown]
  - Dyspepsia [Unknown]
  - Pruritus [Unknown]
  - Insomnia [Unknown]

NARRATIVE: CASE EVENT DATE: 2014
